FAERS Safety Report 5530295-2 (Version None)
Quarter: 2007Q4

REPORT INFORMATION
  Report Type: 
  Country: None (occurrence: None)
  Receive Date: 20071127
  Receipt Date: 20071116
  Transmission Date: 20080405
  Serious: Yes (Hospitalization)
  Sender: FDA-Public Use
  Company Number: 062-C5013-07080966

PATIENT
  Age: 54 Year
  Sex: Female
  Weight: 75 kg

DRUGS (8)
  1. CC-5013 (LENALIDOMIDE) (CAPSULES) [Suspect]
     Indication: MULTIPLE MYELOMA
     Dosage: 25 MG, DAILY, ORAL
     Route: 048
     Dates: start: 20070514, end: 20070610
  2. DEXAMETHASONE TAB [Suspect]
     Indication: MULTIPLE MYELOMA
     Dosage: 40 MG, ORAL : 8 MG, 1X, ORAL
     Route: 048
     Dates: start: 20070514, end: 20070610
  3. DEXAMETHASONE TAB [Suspect]
     Indication: MULTIPLE MYELOMA
     Dosage: 40 MG, ORAL : 8 MG, 1X, ORAL
     Route: 048
     Dates: start: 20070612
  4. ACYCLOVIR [Concomitant]
  5. TRILEPTAL [Concomitant]
  6. REKAWAN (POTASSIUM CHLORIDE) [Concomitant]
  7. PANTOZOL (PANTOPRAZOLE SODIUM) [Concomitant]
  8. MG VERLA (MAGNESIUM HYDROGEN ASPARATE) [Concomitant]

REACTIONS (2)
  - ACQUIRED HAEMOPHILIA [None]
  - FACTOR VIII INHIBITION [None]
